FAERS Safety Report 7570847-1 (Version None)
Quarter: 2011Q2

REPORT INFORMATION
  Report Type: 
  Country: None (occurrence: None)
  Receive Date: 20110624
  Receipt Date: 20110613
  Transmission Date: 20111010
  Serious: Yes (Hospitalization)
  Sender: FDA-Public Use
  Company Number: NZ-CELGENEUS-118-21880-11052561

PATIENT
  Sex: Male
  Weight: 88 kg

DRUGS (10)
  1. CODEINE PINOS [Concomitant]
     Indication: PAIN MANAGEMENT
     Route: 048
     Dates: start: 20110610, end: 20110610
  2. SEVREDOL [Concomitant]
     Indication: PAIN
     Route: 048
     Dates: start: 20090922, end: 20110516
  3. SEVREDOL [Concomitant]
     Route: 048
     Dates: start: 20110610, end: 20110611
  4. REVLIMID [Suspect]
     Indication: MULTIPLE MYELOMA
     Dosage: 15 MILLIGRAM
     Route: 048
     Dates: start: 20110509, end: 20110602
  5. DEXAMETHASONE [Suspect]
     Indication: MULTIPLE MYELOMA
     Route: 048
     Dates: start: 20110525
  6. COTRIM [Concomitant]
     Indication: PROPHYLAXIS
     Dosage: 1920 MILLIGRAM
     Route: 048
     Dates: start: 20090525
  7. ACYCLOVIR [Concomitant]
     Indication: PROPHYLAXIS
     Dosage: 800 MILLIGRAM
     Route: 048
     Dates: start: 20090525
  8. DEXAMETHASONE [Suspect]
     Route: 048
  9. MORPHINE SULFATE [Concomitant]
     Indication: PAIN MANAGEMENT
     Dosage: 20 MILLIGRAM
     Route: 048
     Dates: start: 20110611, end: 20110613
  10. REVLIMID [Suspect]
     Dosage: 15 MILLIGRAM
     Route: 048
     Dates: start: 20090525

REACTIONS (2)
  - MUSCULOSKELETAL PAIN [None]
  - MEDICAL DEVICE COMPLICATION [None]
